FAERS Safety Report 19369417 (Version 8)
Quarter: 2023Q4

REPORT INFORMATION
  Report Type: Report from Study
  Country: CA (occurrence: CA)
  Receive Date: 20210603
  Receipt Date: 20231124
  Transmission Date: 20240110
  Serious: Yes (Death, Other)
  Sender: FDA-Public Use
  Company Number: CA-NOVARTISPH-PHHY2018CA002818

PATIENT
  Age: 70 Year
  Sex: Male

DRUGS (7)
  1. SANDOSTATIN LAR DEPOT [Suspect]
     Active Substance: OCTREOTIDE ACETATE
     Indication: Carcinoid tumour
     Dosage: 30 MG, QMO (EVERY 4 WEEKS)
     Route: 030
     Dates: start: 20171012
  2. SANDOSTATIN LAR DEPOT [Suspect]
     Active Substance: OCTREOTIDE ACETATE
     Dosage: 30 MG, QMO
     Route: 030
  3. SANDOSTATIN LAR DEPOT [Suspect]
     Active Substance: OCTREOTIDE ACETATE
  4. FRAGMIN [Suspect]
     Active Substance: DALTEPARIN SODIUM
     Indication: Product used for unknown indication
     Dosage: UNK, QD
     Route: 065
     Dates: start: 2018
  5. FRAGMIN [Suspect]
     Active Substance: DALTEPARIN SODIUM
     Dosage: 1 DOSAGE FORM, QD
     Route: 042
  6. XARELTO [Concomitant]
     Active Substance: RIVAROXABAN
     Indication: Product used for unknown indication
     Dosage: 20 MG, QD
     Route: 065
  7. XARELTO [Concomitant]
     Active Substance: RIVAROXABAN
     Dosage: 20 MG
     Route: 065

REACTIONS (23)
  - Death [Fatal]
  - Haemoglobin decreased [Fatal]
  - Blood pressure decreased [Fatal]
  - Cystitis [Fatal]
  - Lethargy [Fatal]
  - Joint swelling [Fatal]
  - Peripheral swelling [Fatal]
  - Skin discolouration [Fatal]
  - Insomnia [Fatal]
  - Nasopharyngitis [Fatal]
  - Blood iron decreased [Fatal]
  - Protein total decreased [Fatal]
  - Respiratory rate increased [Fatal]
  - Blood pressure systolic increased [Fatal]
  - Frequent bowel movements [Fatal]
  - Dyspnoea [Fatal]
  - Decreased appetite [Fatal]
  - Abdominal discomfort [Fatal]
  - Heart rate decreased [Fatal]
  - Injection site pain [Fatal]
  - Fatigue [Fatal]
  - Mass [Fatal]
  - Pruritus [Fatal]

NARRATIVE: CASE EVENT DATE: 20180404
